FAERS Safety Report 7679707-9 (Version None)
Quarter: 2011Q3

REPORT INFORMATION
  Report Type: 
  Country: None (occurrence: None)
  Receive Date: 20110808
  Receipt Date: 20110801
  Transmission Date: 20111222
  Serious: Yes (Hospitalization)
  Sender: FDA-Public Use
  Company Number: 2011SP036209

PATIENT
  Age: 77 Year
  Sex: Male

DRUGS (6)
  1. LYRICA [Concomitant]
  2. LEVOTHYROXINE SODIUM [Concomitant]
  3. CYMBALTA [Suspect]
     Indication: PRODUCT USED FOR UNKNOWN INDICATION
     Dosage: 60 MG;QD;PO
     Route: 048
     Dates: start: 20100901, end: 20101002
  4. MIRTAZAPINE [Suspect]
     Indication: PRODUCT USED FOR UNKNOWN INDICATION
     Dosage: 15 MG;TID;PO
     Route: 048
     Dates: start: 20100901, end: 20101002
  5. OXAZEPAM [Concomitant]
  6. ZOLPIDEM [Concomitant]

REACTIONS (14)
  - COMA [None]
  - HYPOPHOSPHATAEMIA [None]
  - MANIA [None]
  - LUNG DISORDER [None]
  - HYPONATRAEMIA [None]
  - HYPOMAGNESAEMIA [None]
  - MEMORY IMPAIRMENT [None]
  - ABDOMINAL PAIN [None]
  - VOMITING [None]
  - MALAISE [None]
  - POLYDIPSIA [None]
  - BLOOD CALCIUM DECREASED [None]
  - HYPOCHLORAEMIA [None]
  - AGITATION [None]
